FAERS Safety Report 22084185 (Version 3)
Quarter: 2023Q2

REPORT INFORMATION
  Report Type: Spontaneous
  Country: US (occurrence: US)
  Receive Date: 20230310
  Receipt Date: 20230627
  Transmission Date: 20230722
  Serious: No
  Sender: FDA-Public Use
  Company Number: US-THERATECHNOLOGIES INC.-2023-THE-TES-000014

PATIENT

DRUGS (3)
  1. EGRIFTA SV [Suspect]
     Active Substance: TESAMORELIN ACETATE
     Indication: Lipodystrophy acquired
     Dosage: UNK, QD
     Route: 058
     Dates: start: 202210, end: 202301
  2. EGRIFTA SV [Suspect]
     Active Substance: TESAMORELIN ACETATE
     Dosage: UNK, QD
     Route: 058
     Dates: start: 20230118
  3. EGRIFTA SV [Suspect]
     Active Substance: TESAMORELIN ACETATE
     Dosage: UNK, QD
     Route: 058
     Dates: start: 20230504

REACTIONS (2)
  - Drug ineffective [Unknown]
  - Product supply issue [Recovered/Resolved]

NARRATIVE: CASE EVENT DATE: 20230101
